FAERS Safety Report 9185671 (Version 1)
Quarter: 2012Q4

REPORT INFORMATION
  Report Type: 
  Country: PH (occurrence: PH)
  Receive Date: 20121101
  Receipt Date: 20121101
  Transmission Date: 20130627
  Serious: Yes (Death, Hospitalization, Other)
  Sender: FDA-Public Use
  Company Number: PH-BAXTER-2012BAX021569

PATIENT
  Sex: Female

DRUGS (1)
  1. DIANEAL PD2 WITH 1.5% DEXTROSE [Suspect]
     Indication: CONTINUOUS AMBULATORY PERITONEAL DIALYSIS
     Route: 033
     Dates: start: 20121010

REACTIONS (6)
  - Multi-organ failure [Fatal]
  - Chronic obstructive pulmonary disease [Unknown]
  - Asthenia [Unknown]
  - Condition aggravated [Unknown]
  - Lung disorder [Unknown]
  - Blood pressure abnormal [Unknown]
